FAERS Safety Report 4333328-4 (Version None)
Quarter: 2004Q2

REPORT INFORMATION
  Report Type: 
  Country: None (occurrence: None)
  Receive Date: 20040406
  Receipt Date: 20040115
  Transmission Date: 20050107
  Serious: Yes (Death)
  Sender: FDA-Public Use
  Company Number: BE-MERCK-0401BEL00010

PATIENT
  Age: 75 Year
  Sex: Male
  Weight: 80 kg

DRUGS (4)
  1. ACENOCOUMAROL [Concomitant]
     Indication: PROPHYLAXIS
     Route: 048
  2. CAPTOPRIL [Concomitant]
     Indication: CARDIAC FAILURE
     Route: 048
  3. FUROSEMIDE [Concomitant]
     Indication: CARDIAC FAILURE
     Route: 048
  4. SINGULAIR [Suspect]
     Indication: ASTHMA
     Route: 048
     Dates: start: 20030101, end: 20030101

REACTIONS (2)
  - CEREBROVASCULAR ACCIDENT [None]
  - NAUSEA [None]
